FAERS Safety Report 7780688-8 (Version None)
Quarter: 2011Q3

REPORT INFORMATION
  Report Type: 
  Country: None (occurrence: None)
  Receive Date: 20110927
  Receipt Date: 20110419
  Transmission Date: 20111222
  Serious: Yes (Other)
  Sender: FDA-Public Use
  Company Number: US-BRISTOL-MYERS SQUIBB COMPANY-15630098

PATIENT
  Age: 49 Year
  Sex: Female
  Weight: 90 kg

DRUGS (4)
  1. AVAPRO [Suspect]
     Indication: HYPERTENSION
     Dosage: 2 MONTHS 1/2 PILL OF 300 MG
  2. LORTAB [Concomitant]
  3. LEVOTHYROXINE SODIUM [Concomitant]
  4. NEURONTIN [Concomitant]

REACTIONS (3)
  - DRUG ADMINISTRATION ERROR [None]
  - HYPERTENSION [None]
  - CEREBROVASCULAR ACCIDENT [None]
